FAERS Safety Report 7798632-6 (Version None)
Quarter: 2011Q4

REPORT INFORMATION
  Report Type: 
  Country: None (occurrence: None)
  Receive Date: 20111005
  Receipt Date: 20110929
  Transmission Date: 20120403
  Serious: Yes (Other)
  Sender: FDA-Public Use
  Company Number: US-AMGEN-USASP2011049267

PATIENT
  Age: 56 Year
  Sex: Female

DRUGS (3)
  1. ENBREL [Suspect]
     Indication: PSORIASIS
     Dosage: 50 MG, 2 TIMES/WK
     Dates: start: 20110903
  2. ENBREL [Suspect]
  3. ENBREL [Suspect]
     Indication: OSTEOARTHRITIS

REACTIONS (11)
  - PAIN [None]
  - FEELING ABNORMAL [None]
  - INJECTION SITE HAEMATOMA [None]
  - DIZZINESS [None]
  - INJECTION SITE PAIN [None]
  - GAIT DISTURBANCE [None]
  - DYSARTHRIA [None]
  - HEADACHE [None]
  - INJECTION SITE DISCOMFORT [None]
  - MALAISE [None]
  - SINUS CONGESTION [None]
